FAERS Safety Report 26101160 (Version 1)
Quarter: 2025Q4

REPORT INFORMATION
  Report Type: Spontaneous
  Country: EU (occurrence: EU)
  Receive Date: 20251128
  Receipt Date: 20251128
  Transmission Date: 20260118
  Serious: Yes (Hospitalization, Other)
  Sender: AUROBINDO
  Company Number: EU-MLMSERVICE-20251030-PI694168-00306-1

PATIENT
  Age: 14 Year
  Sex: Male

DRUGS (10)
  1. MYCOPHENOLATE MOFETIL [Suspect]
     Active Substance: MYCOPHENOLATE MOFETIL
     Indication: Immunosuppressant drug therapy
     Dosage: 300 MILLIGRAM, TWO TIMES A DAY
     Route: 065
     Dates: start: 201902, end: 201905
  2. METRONIDAZOLE [Suspect]
     Active Substance: METRONIDAZOLE
     Indication: Mouth ulceration
     Dosage: UNK
     Route: 065
  3. FLUCONAZOLE [Suspect]
     Active Substance: FLUCONAZOLE
     Indication: Mouth ulceration
     Dosage: UNK, EVERY OTHER DAY
     Route: 065
     Dates: start: 2019
  4. AMOXICILLIN [Suspect]
     Active Substance: AMOXICILLIN
     Indication: Mouth ulceration
     Dosage: 500 MILLIGRAM, ONCE A DAY
     Route: 065
     Dates: start: 2019
  5. PROGRAF [Suspect]
     Active Substance: TACROLIMUS
     Indication: Immunosuppressant drug therapy
     Dosage: 3 MILLIGRAM, TWO TIMES A DAY
     Route: 065
     Dates: start: 201902, end: 201906
  6. CLINDAMYCIN [Suspect]
     Active Substance: CLINDAMYCIN
     Indication: Mouth ulceration
     Dosage: UNK
     Route: 065
  7. PREDNISONE [Suspect]
     Active Substance: PREDNISONE
     Indication: Immunosuppressant drug therapy
     Dosage: 5 MILLIGRAM, ONCE A DAY
     Route: 065
     Dates: start: 2019
  8. PREDNISONE [Suspect]
     Active Substance: PREDNISONE
     Indication: Mouth ulceration
  9. SULFAMETHOXAZOLE\TRIMETHOPRIM [Suspect]
     Active Substance: SULFAMETHOXAZOLE\TRIMETHOPRIM
     Indication: Mouth ulceration
     Dosage: 480 MILLIGRAM, EVERY OTHER DAY
     Route: 065
     Dates: start: 2019
  10. NYSTATIN [Suspect]
     Active Substance: NYSTATIN
     Indication: Mouth ulceration
     Dosage: 500 INTERNATIONAL UNIT, ONCE A DAY
     Route: 065

REACTIONS (5)
  - Neutropenia [Recovering/Resolving]
  - Mucosal ulceration [Recovered/Resolved]
  - Mouth ulceration [Recovered/Resolved]
  - Mucosal necrosis [Recovered/Resolved]
  - Therapy non-responder [Unknown]

NARRATIVE: CASE EVENT DATE: 20190101
